FAERS Safety Report 7503785-0 (Version None)
Quarter: 2011Q2

REPORT INFORMATION
  Report Type: 
  Country: None (occurrence: None)
  Receive Date: 20110518
  Receipt Date: 20110503
  Transmission Date: 20111010
  Serious: Yes (Hospitalization)
  Sender: FDA-Public Use
  Company Number: AUR-APL-2011-01592

PATIENT
  Age: 67 Year
  Sex: Male

DRUGS (26)
  1. CAFFEINE/PAPAVER SOMNIFERUM LATEX/PARACETAMOL [Concomitant]
  2. CLOPIDOGREL BISULFATE [Concomitant]
  3. OXAZEPAM [Concomitant]
  4. PANTOPRAZOLE [Concomitant]
  5. SERTRALINE HYDROCHLORIDE [Concomitant]
  6. STRUCTUM [Suspect]
  7. VENTOLIN [Suspect]
  8. DICLOFENAC SODIUM [Concomitant]
  9. CORDARONE [Suspect]
     Indication: ARRHYTHMIA
     Dosage: 200MG-ORAL
     Route: 048
     Dates: end: 20110125
  10. PLAVIX [Suspect]
  11. NITROGLYCERIN [Suspect]
  12. TRAMADOL HCL [Concomitant]
  13. CALCIUM CARBONATE/COLECALCIFEROL [Concomitant]
  14. TRAMADOL HCL [Suspect]
  15. VOLTAREN [Suspect]
  16. PANTOPRAZOLE [Suspect]
  17. DIACEREIN [Concomitant]
  18. ALBUTEROL [Concomitant]
  19. CALCIUM CARBONATE [Suspect]
  20. DIHYDROCODEINE BITARTRATE [Concomitant]
  21. SIMVASTATIN [Suspect]
     Indication: DYSLIPIDAEMIA
     Dosage: 40MG-DAILY-ORAL
     Route: 048
     Dates: end: 20110125
  22. DIACEREIN [Suspect]
  23. ZOLPIDEM TARTRATE [Concomitant]
  24. CLONAZEPAM [Concomitant]
  25. CHONDROITIN SULFATE SODIUM [Concomitant]
  26. NITROGLYCERIN [Concomitant]

REACTIONS (12)
  - DRUG WITHDRAWAL SYNDROME [None]
  - BLOOD ALKALINE PHOSPHATASE INCREASED [None]
  - ELECTROENCEPHALOGRAM ABNORMAL [None]
  - VOMITING [None]
  - SPEECH DISORDER [None]
  - CONFUSIONAL STATE [None]
  - ALANINE AMINOTRANSFERASE INCREASED [None]
  - HALLUCINATIONS, MIXED [None]
  - CONSCIOUSNESS FLUCTUATING [None]
  - DISORIENTATION [None]
  - CYTOLYTIC HEPATITIS [None]
  - ASPARTATE AMINOTRANSFERASE INCREASED [None]
